FAERS Safety Report 8847583 (Version 1)
Quarter: 2012Q4

REPORT INFORMATION
  Report Type: 
  Country: AU (occurrence: AU)
  Receive Date: 20121018
  Receipt Date: 20121018
  Transmission Date: 20130627
  Serious: Yes (Hospitalization)
  Sender: FDA-Public Use
  Company Number: AU-WATSON-2012-17830

PATIENT
  Age: 20 Year
  Sex: Male

DRUGS (6)
  1. PREDNISONE (UNKNOWN) [Suspect]
     Indication: MENINGITIS TUBERCULOUS
     Dosage: 50 mg, daily start on day 8
     Route: 048
  2. PREDNISONE (UNKNOWN) [Suspect]
     Dosage: 40 mg, daily, day 2-8
     Route: 048
  3. ISONIAZID [Concomitant]
     Indication: MENINGITIS TUBERCULOUS
  4. ETHAMBUTOL [Concomitant]
     Indication: MENINGITIS TUBERCULOUS
  5. PYRAZINAMID [Concomitant]
     Indication: MENINGITIS TUBERCULOUS
  6. RIFAMPICIN [Concomitant]
     Indication: MENINGITIS TUBERCULOUS

REACTIONS (1)
  - Suicidal ideation [Recovered/Resolved]
